FAERS Safety Report 5473626-4 (Version None)
Quarter: 2007Q4

REPORT INFORMATION
  Report Type: 
  Country: None (occurrence: None)
  Receive Date: 20071001
  Receipt Date: 20051020
  Transmission Date: 20080405
  Serious: Yes (Other)
  Sender: FDA-Public Use
  Company Number: US-PFIZER INC-2005145013

PATIENT
  Sex: Male
  Weight: 77.1 kg

DRUGS (5)
  1. LIPITOR [Suspect]
     Indication: BLOOD CHOLESTEROL INCREASED
     Route: 065
  2. CELEBREX [Suspect]
     Indication: ARTHRITIS
     Dosage: TEXT:UNKNOWN-FREQ:UNKNOWN
     Route: 065
  3. CELEBREX [Suspect]
     Indication: ARTHRALGIA
  4. VIAGRA [Suspect]
     Indication: ERECTILE DYSFUNCTION
     Route: 065
  5. BEXTRA [Suspect]
     Indication: ILL-DEFINED DISORDER
     Dosage: TEXT:UNKNOWN-FREQ:UNKNOWN
     Route: 065

REACTIONS (18)
  - ARTHRALGIA [None]
  - ARTHRITIS [None]
  - BLOOD CHOLESTEROL INCREASED [None]
  - CHROMATOPSIA [None]
  - DRUG EFFECT INCREASED [None]
  - DRUG INEFFECTIVE [None]
  - DRY EYE [None]
  - DYSURIA [None]
  - ERECTILE DYSFUNCTION [None]
  - EYE IRRITATION [None]
  - GAIT DISTURBANCE [None]
  - MYALGIA [None]
  - OCULAR HYPERAEMIA [None]
  - PAIN [None]
  - PROSTATE EXAMINATION ABNORMAL [None]
  - URINARY HESITATION [None]
  - VISION BLURRED [None]
  - VITREOUS FLOATERS [None]
